FAERS Safety Report 9223872 (Version 1)
Quarter: 2013Q2

REPORT INFORMATION
  Report Type: Report from Study
  Country: JP (occurrence: JP)
  Receive Date: 20130411
  Receipt Date: 20130411
  Transmission Date: 20140414
  Serious: Yes (Disabling)
  Sender: FDA-Public Use
  Company Number: JP-009507513-1304JPN004387

PATIENT
  Age: 44 Year
  Sex: Male
  Weight: 57 kg

DRUGS (7)
  1. PEGINTRON [Suspect]
     Indication: CHRONIC HEPATITIS C
     Dosage: 1.5 MICROGRAM PER KILOGRAM, QW
     Route: 058
     Dates: start: 20120611, end: 20121121
  2. REBETOL [Suspect]
     Indication: CHRONIC HEPATITIS C
     Dosage: 600 MG, QD
     Route: 048
     Dates: start: 20120611, end: 20120717
  3. REBETOL [Suspect]
     Dosage: 400 MG, QD
     Route: 048
     Dates: start: 20120718, end: 20121129
  4. TELAVIC [Suspect]
     Indication: CHRONIC HEPATITIS C
     Dosage: 2250 MG, QD
     Dates: start: 20120611, end: 20120717
  5. TELAVIC [Suspect]
     Dosage: 1500 MG, QD
     Route: 048
     Dates: start: 20120718
  6. CALONAL [Concomitant]
     Indication: PYREXIA
     Dosage: 400 MG/DAY, AS NEEDED
     Dates: start: 20120611, end: 20121128
  7. CALONAL [Concomitant]
     Indication: HEADACHE

REACTIONS (3)
  - Hyperuricaemia [Recovering/Resolving]
  - Hyperuricaemia [Recovering/Resolving]
  - Anaemia [Not Recovered/Not Resolved]
